FAERS Safety Report 6433081-4 (Version None)
Quarter: 2009Q4

REPORT INFORMATION
  Report Type: 
  Country: None (occurrence: None)
  Receive Date: 20091105
  Receipt Date: 20091029
  Transmission Date: 20100525
  Serious: Yes (Death)
  Sender: FDA-Public Use
  Company Number: ENTC2009-0389

PATIENT
  Age: 93 Year
  Sex: Male

DRUGS (1)
  1. STALEVO 100 [Suspect]

REACTIONS (1)
  - DEATH [None]
